FAERS Safety Report 5207306-7 (Version None)
Quarter: 2007Q1

REPORT INFORMATION
  Report Type: 
  Country: None (occurrence: None)
  Receive Date: 20070110
  Receipt Date: 20061225
  Transmission Date: 20070707
  Serious: Yes (Life-Threatening, Other)
  Sender: FDA-Public Use
  Company Number: FSC_0029_2007

PATIENT
  Age: 79 Year
  Sex: Male

DRUGS (2)
  1. VASOLAN [Suspect]
     Indication: ATRIAL FIBRILLATION
     Dosage: DF IV
     Route: 042
     Dates: start: 20060401, end: 20060401
  2. MIDAZOLAM HCL [Suspect]
     Indication: RESTLESSNESS
     Dosage: DF IV
     Route: 042
     Dates: start: 20060401, end: 20060401

REACTIONS (4)
  - ATRIAL FIBRILLATION [None]
  - CARDIO-RESPIRATORY ARREST [None]
  - DRUG INTERACTION POTENTIATION [None]
  - DRUG LEVEL INCREASED [None]
